FAERS Safety Report 11317542 (Version 1)
Quarter: 2015Q3

REPORT INFORMATION
  Report Type: Spontaneous
  Country: US (occurrence: US)
  Receive Date: 20150728
  Receipt Date: 20150728
  Transmission Date: 20151125
  Serious: Yes (Other)
  Sender: FDA-Public Use
  Company Number: US-PFIZER INC-2015247146

PATIENT

DRUGS (2)
  1. PREDNISONE. [Concomitant]
     Active Substance: PREDNISONE
     Dosage: UNK
  2. LYRICA [Suspect]
     Active Substance: PREGABALIN
     Indication: FIBROMYALGIA
     Dosage: UNK

REACTIONS (8)
  - Pre-existing condition improved [Unknown]
  - Spinal disorder [Unknown]
  - Back disorder [Unknown]
  - Condition aggravated [Unknown]
  - Foot deformity [Unknown]
  - Dyspnoea [Unknown]
  - Bronchospasm [Unknown]
  - Therapeutic response unexpected [Unknown]
